FAERS Safety Report 20169332 (Version 1)
Quarter: 2021Q4

REPORT INFORMATION
  Report Type: Report from Study
  Country: US (occurrence: None)
  Receive Date: 20211210
  Receipt Date: 20211210
  Transmission Date: 20220303
  Serious: Yes (Hospitalization, Other)
  Sender: FDA-Public Use
  Company Number: US-ROCHE-2973281

PATIENT
  Age: 69 Year
  Sex: Female
  Weight: 70.5 kg

DRUGS (2)
  1. OBINUTUZUMAB [Suspect]
     Active Substance: OBINUTUZUMAB
     Indication: Chronic lymphocytic leukaemia
     Dosage: DATE OF LAST DOSE ADMINISTERED ON 29/APR/2021.?100 MG IV ON DAY 1, CYCLE 1?900 MG IV ON DAY 2, CYCLE
     Route: 042
     Dates: start: 20210304
  2. IBRUTINIB [Suspect]
     Active Substance: IBRUTINIB
     Indication: Chronic lymphocytic leukaemia
     Dosage: DATE OF LAST DOSE ADMINISTERED ON 24/MAY/2021
     Route: 048
     Dates: start: 20210304

REACTIONS (3)
  - Atrial fibrillation [Recovered/Resolved]
  - Hypertension [Unknown]
  - Chest pain [Recovered/Resolved]

NARRATIVE: CASE EVENT DATE: 20210331
